FAERS Safety Report 10087079 (Version 1)
Quarter: 2014Q2

REPORT INFORMATION
  Report Type: Spontaneous
  Country: US (occurrence: US)
  Receive Date: 20140418
  Receipt Date: 20140418
  Transmission Date: 20141212
  Serious: Yes (Other)
  Sender: FDA-Public Use
  Company Number: US-ELI_LILLY_AND_COMPANY-US201404003676

PATIENT
  Age: 67 Year
  Sex: Male

DRUGS (4)
  1. HUMULIN 30% REGULAR, 70% NPH [Suspect]
     Indication: TYPE 2 DIABETES MELLITUS
     Dosage: UNK
     Dates: start: 20110802, end: 20110808
  2. METFORMIN [Concomitant]
  3. RAMIPRIL [Concomitant]
  4. ALISKIREN [Concomitant]

REACTIONS (1)
  - Seronegative arthritis [Recovered/Resolved]
